FAERS Safety Report 11292258 (Version 4)
Quarter: 2015Q3

REPORT INFORMATION
  Report Type: Report from Study
  Country: US (occurrence: US)
  Receive Date: 20150722
  Receipt Date: 20150904
  Transmission Date: 20151125
  Serious: Yes (Hospitalization)
  Sender: FDA-Public Use
  Company Number: US-ACTELION-A-NJ2015-119831

PATIENT
  Age: 59 Year
  Sex: Female

DRUGS (6)
  1. REVATIO [Concomitant]
     Active Substance: SILDENAFIL CITRATE
  2. ADCIRCA [Concomitant]
     Active Substance: TADALAFIL
  3. VELETRI [Suspect]
     Active Substance: EPOPROSTENOL
     Dosage: 6 NG/KG, PER MIN
     Route: 042
     Dates: start: 20150615
  4. VELETRI [Suspect]
     Active Substance: EPOPROSTENOL
     Indication: PULMONARY ARTERIAL HYPERTENSION
     Dosage: 6.3 NG/KG, PER MIN
     Route: 042
     Dates: start: 20150615
  5. VELETRI [Suspect]
     Active Substance: EPOPROSTENOL
     Dosage: 8 NG/KG, PER MIN
     Route: 042
     Dates: start: 20150615
  6. TRACLEER [Concomitant]
     Active Substance: BOSENTAN
     Indication: PULMONARY ARTERIAL HYPERTENSION
     Dosage: UNK
     Route: 048

REACTIONS (22)
  - Nausea [Unknown]
  - Anxiety [Unknown]
  - Flushing [Unknown]
  - Oedema peripheral [Unknown]
  - Periorbital oedema [Unknown]
  - Vomiting [Unknown]
  - Diarrhoea [Unknown]
  - Muscle spasms [Unknown]
  - Headache [Unknown]
  - Decreased appetite [Unknown]
  - Dyspnoea exertional [Unknown]
  - Hypersomnia [Unknown]
  - Depression [Unknown]
  - Cardiac failure [Unknown]
  - Asthenia [Unknown]
  - Fatigue [Unknown]
  - Dyspnoea [Not Recovered/Not Resolved]
  - Hypokalaemia [Unknown]
  - Infection [Unknown]
  - Pain in jaw [Unknown]
  - Dizziness [Unknown]
  - Retching [Unknown]
